FAERS Safety Report 25616488 (Version 1)
Quarter: 2025Q3

REPORT INFORMATION
  Report Type: Other
  Country: EU (occurrence: EU)
  Receive Date: 20250729
  Receipt Date: 20250729
  Transmission Date: 20251021
  Serious: Yes (Other)
  Sender: ZYDUS PHARM
  Company Number: None

PATIENT

DRUGS (8)
  1. BACLOFEN [Suspect]
     Active Substance: BACLOFEN
     Indication: Alcoholism
     Route: 064
     Dates: end: 20250522
  2. METFORMIN [Suspect]
     Active Substance: METFORMIN HYDROCHLORIDE
     Indication: Type 2 diabetes mellitus
     Route: 064
     Dates: end: 202412
  3. FLUOXETINE [Suspect]
     Active Substance: FLUOXETINE HYDROCHLORIDE
     Indication: Alcoholism
     Route: 064
     Dates: end: 20250522
  4. BUSPIRONE HYDROCHLORIDE [Suspect]
     Active Substance: BUSPIRONE HYDROCHLORIDE
     Indication: Alcoholism
     Route: 064
     Dates: end: 20250522
  5. DIAZEPAM [Suspect]
     Active Substance: DIAZEPAM
     Indication: Alcoholism
     Route: 064
     Dates: end: 20250522
  6. DISULFIRAM [Suspect]
     Active Substance: DISULFIRAM
     Indication: Alcoholism
     Route: 064
     Dates: end: 20250522
  7. OXAZEPAM [Suspect]
     Active Substance: OXAZEPAM
     Indication: Alcoholism
     Route: 064
     Dates: end: 20250522
  8. QUETIAPINE [Suspect]
     Active Substance: QUETIAPINE
     Indication: Alcoholism
     Route: 064
     Dates: end: 20250522

REACTIONS (4)
  - Premature baby [Recovered/Resolved]
  - Neonatal respiratory distress [Unknown]
  - Hypotonia neonatal [Unknown]
  - Foetal exposure during pregnancy [Recovered/Resolved]

NARRATIVE: CASE EVENT DATE: 20240926
